FAERS Safety Report 13233595 (Version 1)
Quarter: 2017Q1

REPORT INFORMATION
  Report Type: Spontaneous
  Country: US (occurrence: US)
  Receive Date: 20170214
  Receipt Date: 20170214
  Transmission Date: 20170428
  Serious: No
  Sender: FDA-Public Use
  Company Number: None

PATIENT
  Age: 61 Year
  Sex: Male

DRUGS (1)
  1. SUTENT [Suspect]
     Active Substance: SUNITINIB MALATE
     Indication: PRODUCT USED FOR UNKNOWN INDICATION
     Dosage: 50MG DAILY FOR 4 WEEKS, THEN OFF 2 WEEKS PO
     Route: 048
     Dates: start: 20170118

REACTIONS (1)
  - Stomatitis [None]

NARRATIVE: CASE EVENT DATE: 201701
